FAERS Safety Report 17044598 (Version 1)
Quarter: 2019Q4

REPORT INFORMATION
  Report Type: Report from Study
  Country: US (occurrence: US)
  Receive Date: 20191118
  Receipt Date: 20191118
  Transmission Date: 20200122
  Serious: Yes (Other)
  Sender: FDA-Public Use
  Company Number: US-BIOGEN-2019BI00806870

PATIENT
  Sex: Female
  Weight: 84.2 kg

DRUGS (2)
  1. TYSABRI [Suspect]
     Active Substance: NATALIZUMAB
     Indication: MULTIPLE SCLEROSIS
     Dosage: INFUSED OVER 1 HOUR
     Route: 042
     Dates: start: 201412
  2. GLATIRAMER ACETATE. [Concomitant]
     Active Substance: GLATIRAMER ACETATE
     Indication: MULTIPLE SCLEROSIS
     Route: 065
     Dates: start: 201307

REACTIONS (7)
  - Multiple sclerosis [Unknown]
  - Limb discomfort [Unknown]
  - Nocturia [Unknown]
  - Micturition urgency [Unknown]
  - Pollakiuria [Unknown]
  - Constipation [Unknown]
  - Urinary hesitation [Unknown]

NARRATIVE: CASE EVENT DATE: 2018
